FAERS Safety Report 9928452 (Version 1)
Quarter: 2014Q1

REPORT INFORMATION
  Report Type: Spontaneous
  Country: ES (occurrence: ES)
  Receive Date: 20140227
  Receipt Date: 20140227
  Transmission Date: 20141002
  Serious: Yes (Death)
  Sender: FDA-Public Use
  Company Number: ES-ASTELLAS-2014US002021

PATIENT
  Age: 58 Year
  Sex: Male

DRUGS (11)
  1. AMBISOME [Suspect]
     Indication: ZYGOMYCOSIS
     Dosage: 500 MG, UID/QD
     Route: 041
  2. INSULIN [Concomitant]
     Indication: DIABETES MELLITUS
     Dosage: UNK
     Route: 065
  3. VANCOMYCIN [Concomitant]
     Indication: PRODUCT USED FOR UNKNOWN INDICATION
     Dosage: 1 MG, UNKNOWN/D
     Route: 042
  4. VANCOMYCIN [Concomitant]
     Dosage: UNK
     Route: 047
  5. CEFTAZIDIME [Concomitant]
     Indication: PRODUCT USED FOR UNKNOWN INDICATION
     Dosage: 2 MG, UNKNOWN/D
     Route: 042
  6. CEFTAZIDIME [Concomitant]
     Dosage: UNK
     Route: 047
  7. CEFAZOLIN [Concomitant]
     Indication: PRODUCT USED FOR UNKNOWN INDICATION
     Dosage: 1 G, Q8 HOURS
     Route: 042
  8. GENTAMICIN [Concomitant]
     Indication: PRODUCT USED FOR UNKNOWN INDICATION
     Dosage: 240 MG, Q8 HOURS
     Route: 042
  9. CIPROFLOXACIN [Concomitant]
     Indication: PRODUCT USED FOR UNKNOWN INDICATION
     Dosage: 400 MG, Q8 HOURS
     Route: 042
  10. IMIPENEM [Concomitant]
     Indication: ZYGOMYCOSIS
     Dosage: 500 MG, Q8 HOURS
     Route: 065
  11. DAPTOMYCIN [Concomitant]
     Indication: ZYGOMYCOSIS
     Dosage: 350 MG, Q8 HOURS
     Route: 065

REACTIONS (1)
  - Drug ineffective for unapproved indication [Fatal]
